FAERS Safety Report 5452322-3 (Version None)
Quarter: 2007Q3

REPORT INFORMATION
  Report Type: 
  Country: None (occurrence: None)
  Receive Date: 20070912
  Receipt Date: 20070912
  Transmission Date: 20080115
  Serious: Yes (Other)
  Sender: FDA-Public Use
  Company Number: None

PATIENT
  Sex: Male
  Weight: 99.7913 kg

DRUGS (2)
  1. HEPARIN [Suspect]
     Indication: DEEP VEIN THROMBOSIS
     Dosage: 1250 UNITS/HR CONTINUOUS IV DRIP
     Route: 041
     Dates: start: 20070906, end: 20070909
  2. HEPARIN [Suspect]
     Indication: DEEP VEIN THROMBOSIS
     Dosage: 5000 UNITS ONE TIME DOSE IV BOLUS
     Route: 040
     Dates: start: 20070909, end: 20070909

REACTIONS (4)
  - DISEASE PROGRESSION [None]
  - DRUG INEFFECTIVE [None]
  - THROMBOCYTOPENIA [None]
  - VENOUS THROMBOSIS [None]
